FAERS Safety Report 6392305-2 (Version None)
Quarter: 2009Q4

REPORT INFORMATION
  Report Type: 
  Country: None (occurrence: None)
  Receive Date: 20091007
  Receipt Date: 20090923
  Transmission Date: 20100525
  Serious: Yes (Other)
  Sender: FDA-Public Use
  Company Number: PHHY2009BR41447

PATIENT
  Sex: Male

DRUGS (2)
  1. DIOVAN [Suspect]
     Indication: HYPERTENSION
     Dosage: 160 MG
  2. SIMVASTATIN [Concomitant]
     Dosage: UNK
     Dates: start: 20090101

REACTIONS (3)
  - CARDIAC DISORDER [None]
  - INFARCTION [None]
  - STRESS [None]
